FAERS Safety Report 10640505 (Version 1)
Quarter: 2014Q4

REPORT INFORMATION
  Report Type: Spontaneous
  Country: CH (occurrence: CH)
  Receive Date: 20141209
  Receipt Date: 20141209
  Transmission Date: 20150529
  Serious: Yes (Hospitalization)
  Sender: FDA-Public Use
  Company Number: CH-PFIZER INC-2014336241

PATIENT
  Age: 40 Year
  Sex: Male

DRUGS (13)
  1. HEROIN [Interacting]
     Active Substance: DIACETYLMORPHINE
     Indication: DRUG DEPENDENCE
     Dosage: UNK IV DRIP
     Route: 042
  2. BENERVA [Concomitant]
     Active Substance: THIAMINE
     Dosage: 300 MG, 1X/DAY
     Route: 048
  3. SOLU-MEDROL [Suspect]
     Active Substance: METHYLPREDNISOLONE SODIUM SUCCINATE
     Indication: ACUTE RESPIRATORY DISTRESS SYNDROME
     Dosage: 40 MG, 4X/DAY BOLUS
     Route: 042
     Dates: start: 20141015, end: 20141021
  4. SEROQUEL XR [Concomitant]
     Active Substance: QUETIAPINE FUMARATE
     Dosage: 50 MG, 2X/DAY
     Route: 048
  5. AUGMENTIN [Concomitant]
     Active Substance: AMOXICILLIN\CLAVULANATE POTASSIUM
     Indication: PNEUMONIA BACTERIAL
     Dosage: 1.2 G, EVERY 6 HOURS, BOLUS
     Route: 042
     Dates: start: 20141004, end: 20141007
  6. ANXIOLIT [Concomitant]
     Active Substance: OXAZEPAM
     Indication: DRUG DEPENDENCE
     Dosage: 30 MG 6X/DAY (AND MAX. 4X/DAY IN RESERVE)
     Route: 048
  7. NICOTINE TRANSDERMAL SYSTEM [Concomitant]
     Active Substance: NICOTINE
     Indication: TOBACCO ABUSE
     Dosage: 21 MG/24 H
     Route: 062
  8. PURSANA [Concomitant]
     Active Substance: FIG FRUIT OIL\SORBITOL
     Dosage: 15 ML, 1X/DAY
     Route: 048
  9. ROCEPHINE [Concomitant]
     Active Substance: CEFTRIAXONE SODIUM
     Indication: PNEUMONIA KLEBSIELLA
     Dosage: 2 G EVERY 24 H, BOLUS
     Route: 042
     Dates: start: 20141010, end: 20141017
  10. CLEXANE [Concomitant]
     Active Substance: ENOXAPARIN SODIUM
     Dosage: 40 MG, 1X/DAY
     Route: 058
  11. PIPERACILLIN/TAZOBACTAM [Concomitant]
     Indication: PNEUMONIA KLEBSIELLA
     Dosage: 4.8 G EVERY 8 HOURS
     Route: 042
     Dates: start: 20141007, end: 20141010
  12. SEVREDOL [Interacting]
     Active Substance: MORPHINE
     Indication: DRUG DEPENDENCE
     Dosage: 20 MG, EVERY 4 HRS
     Route: 048
  13. BECOZYME FORTE [Concomitant]
     Dosage: 1 TAB, 1X/DAY
     Route: 048

REACTIONS (2)
  - Drug interaction [Unknown]
  - Secondary adrenocortical insufficiency [Recovering/Resolving]

NARRATIVE: CASE EVENT DATE: 20141022
